FAERS Safety Report 21129260 (Version 2)
Quarter: 2022Q3

REPORT INFORMATION
  Report Type: Spontaneous
  Country: JP (occurrence: JP)
  Receive Date: 20220725
  Receipt Date: 20220927
  Transmission Date: 20221027
  Serious: Yes (Other)
  Sender: FDA-Public Use
  Company Number: JP-JNJFOC-20220743818

PATIENT
  Age: 8 Decade
  Sex: Male

DRUGS (1)
  1. OPSUMIT [Suspect]
     Active Substance: MACITENTAN
     Indication: Pulmonary arterial hypertension
     Route: 048
     Dates: start: 20220701

REACTIONS (1)
  - Pulmonary oedema [Not Recovered/Not Resolved]

NARRATIVE: CASE EVENT DATE: 20220715
